FAERS Safety Report 8341208-2 (Version None)
Quarter: 2012Q2

REPORT INFORMATION
  Report Type: 
  Country: None (occurrence: None)
  Receive Date: 20120507
  Receipt Date: 20120430
  Transmission Date: 20120825
  Serious: Yes (Death, Hospitalization, Other)
  Sender: FDA-Public Use
  Company Number: US-INCYTE CORPORATION-2012IN000536

PATIENT
  Sex: Male
  Weight: 64.399 kg

DRUGS (6)
  1. COUMADIN [Suspect]
     Dosage: 5 MG, UNK
  2. LASIX [Concomitant]
     Dosage: 40 MG, ALTERNATING WITH 80 MG, QD
  3. PRILOSEC [Concomitant]
     Dosage: 20 MG, QD
     Route: 048
  4. JAKAFI [Suspect]
     Indication: POLYCYTHAEMIA VERA
     Dosage: 20 MG, BID
     Route: 048
     Dates: start: 20120203, end: 20120314
  5. ATIVAN [Concomitant]
     Dosage: 0.5 MG, QD
     Route: 048
  6. METOPROLOL TARTRATE [Concomitant]

REACTIONS (3)
  - PLEURAL EFFUSION [None]
  - CIRCULATORY COLLAPSE [None]
  - LEUKAEMOID REACTION [None]
